FAERS Safety Report 5246647-4 (Version None)
Quarter: 2007Q1

REPORT INFORMATION
  Report Type: 
  Country: None (occurrence: None)
  Receive Date: 20070216
  Receipt Date: 20070209
  Transmission Date: 20070707
  Serious: Yes (Death)
  Sender: FDA-Public Use
  Company Number: 2007-154312-NL

PATIENT
  Age: 61 Year
  Sex: Male

DRUGS (15)
  1. MIRTAZAPINE [Suspect]
  2. FENTANYL [Suspect]
  3. CODEINE [Suspect]
  4. CITALOPRAM HYDROBROMIDE [Suspect]
  5. HYDROCODONE [Suspect]
  6. TIZANIDINE HCL [Concomitant]
  7. LORAZEPAM [Concomitant]
  8. DEPAKOTE [Concomitant]
  9. ZOLPIDEM [Concomitant]
  10. ESCITALOPRAM [Concomitant]
  11. DOXEPIN HCL [Concomitant]
  12. CELECOXIB [Concomitant]
  13. NEURONTIN [Concomitant]
  14. ZONISAMIDE [Concomitant]
  15. MARIJUANA [Concomitant]

REACTIONS (11)
  - ACCIDENTAL DEATH [None]
  - BACK PAIN [None]
  - DRUG ABUSER [None]
  - DRUG LEVEL DECREASED [None]
  - DRUG TOXICITY [None]
  - INFLAMMATION [None]
  - LOSS OF CONSCIOUSNESS [None]
  - OSTEOARTHRITIS [None]
  - OVERDOSE [None]
  - PAIN IN EXTREMITY [None]
  - PULMONARY OEDEMA [None]
